FAERS Safety Report 5192851-3 (Version None)
Quarter: 2006Q4

REPORT INFORMATION
  Report Type: 
  Country: None (occurrence: None)
  Receive Date: 20061228
  Receipt Date: 20051223
  Transmission Date: 20070319
  Serious: No
  Sender: FDA-Public Use
  Company Number: US-GLAXOSMITHKLINE-A0586931A

PATIENT
  Age: 27 Year
  Sex: Female

DRUGS (2)
  1. FLONASE [Suspect]
     Dosage: 1SPR PER DAY
     Route: 045
  2. ADVAIR DISKUS 100/50 [Concomitant]

REACTIONS (2)
  - PHARMACEUTICAL PRODUCT COMPLAINT [None]
  - SNEEZING [None]
